FAERS Safety Report 7945088-6 (Version None)
Quarter: 2011Q4

REPORT INFORMATION
  Report Type: 
  Country: None (occurrence: None)
  Receive Date: 20111129
  Receipt Date: 20111121
  Transmission Date: 20120403
  Serious: Yes (Other)
  Sender: FDA-Public Use
  Company Number: IE-US-EMD SERONO, INC.-7053026

PATIENT
  Sex: Male

DRUGS (6)
  1. TOPIMARATE (TOPIRAMATE) [Concomitant]
     Indication: PRODUCT USED FOR UNKNOWN INDICATION
     Dosage: 2 TABLETS DAILY
  2. HYDROCORTISONE [Concomitant]
     Indication: PITUITARY TUMOUR
  3. SAIZEN [Suspect]
     Indication: PITUITARY TUMOUR
     Dates: start: 20100518
  4. LEVOTHYROXINE SODIUM [Concomitant]
     Indication: PRODUCT USED FOR UNKNOWN INDICATION
  5. SAIZEN [Suspect]
     Route: 058
  6. KEPPRA [Concomitant]
     Indication: EPILEPSY

REACTIONS (4)
  - HEADACHE [None]
  - JOINT SWELLING [None]
  - FATIGUE [None]
  - CONVULSION [None]
